FAERS Safety Report 22170976 (Version 1)
Quarter: 2023Q2

REPORT INFORMATION
  Report Type: Spontaneous
  Country: US (occurrence: None)
  Receive Date: 20230403
  Receipt Date: 20230403
  Transmission Date: 20230721
  Serious: Yes (unspecified)
  Sender: FDA-Public Use
  Company Number: None

PATIENT
  Sex: Male
  Weight: 69 kg

DRUGS (1)
  1. METOCLOPRAMIDE [Suspect]
     Active Substance: METOCLOPRAMIDE
     Indication: Constipation
     Dosage: FREQUENCY : 3 TIMES A DAY;?
     Dates: start: 20230218, end: 20230228

REACTIONS (5)
  - Perirectal abscess [None]
  - Pneumonia [None]
  - Muscle rigidity [None]
  - Hypertension [None]
  - Catatonia [None]

NARRATIVE: CASE EVENT DATE: 20230227
